FAERS Safety Report 6620955-4 (Version None)
Quarter: 2010Q1

REPORT INFORMATION
  Report Type: 
  Country: None (occurrence: None)
  Receive Date: 20100309
  Receipt Date: 20100225
  Transmission Date: 20100710
  Serious: Yes (Hospitalization, Other)
  Sender: FDA-Public Use
  Company Number: MX-BRISTOL-MYERS SQUIBB COMPANY-14995427

PATIENT
  Age: 84 Year
  Sex: Male

DRUGS (12)
  1. APIXABAN [Suspect]
     Indication: THROMBOSIS PROPHYLAXIS
     Dosage: INTERRUPTED 31JAN10 TO 08FEB10
     Route: 048
     Dates: start: 20091201
  2. WARFARIN SODIUM [Suspect]
     Indication: THROMBOSIS PROPHYLAXIS
     Dosage: INTERRUPTED 31JAN10 TO 08FEB10
     Route: 048
     Dates: start: 20091201
  3. PLACEBO [Suspect]
     Indication: THROMBOSIS PROPHYLAXIS
     Dosage: INTERRUPTED 31JAN10 TO 08FEB10
     Route: 048
     Dates: start: 20091201
  4. FUROSEMIDE [Concomitant]
     Indication: CARDIAC FAILURE
     Dates: start: 20080101
  5. CARBAMAZEPINE [Concomitant]
     Indication: PAIN IN EXTREMITY
     Dates: start: 20091220
  6. DIGOXIN [Concomitant]
     Indication: CARDIAC FAILURE
     Dates: start: 20080101, end: 20100131
  7. AMLODIPINE [Concomitant]
     Indication: HYPERTENSION
     Dates: start: 20080101, end: 20100208
  8. HYDRALAZINE HCL [Concomitant]
     Indication: HYPERTENSION
     Dates: start: 20070101, end: 20100208
  9. PENTOXIFYLLINE [Concomitant]
     Indication: VENOUS INSUFFICIENCY
     Dates: start: 20080101, end: 20100131
  10. CLONAZEPAM [Concomitant]
     Dates: start: 20080101, end: 20100131
  11. AMIODARONE HCL [Concomitant]
     Indication: ARRHYTHMIA
     Dates: start: 20091201, end: 20100101
  12. ESPIRONOLACTONA [Concomitant]
     Indication: CARDIAC FAILURE
     Dates: start: 20091201, end: 20100129

REACTIONS (1)
  - NEUROPATHY PERIPHERAL [None]
